FAERS Safety Report 25051620 (Version 2)
Quarter: 2025Q1

REPORT INFORMATION
  Report Type: Spontaneous
  Country: JP (occurrence: JP)
  Receive Date: 20250307
  Receipt Date: 20250318
  Transmission Date: 20250409
  Serious: Yes (Death, Other)
  Sender: GLAXOSMITHKLINE
  Company Number: JP-TAKEDA-2025TJP002481

PATIENT

DRUGS (1)
  1. ZEJULA [Suspect]
     Active Substance: NIRAPARIB
     Indication: Ovarian clear cell carcinoma
     Dosage: 200 MG, QD
     Route: 048

REACTIONS (2)
  - Ovarian cancer recurrent [Fatal]
  - Drug ineffective [Unknown]
